FAERS Safety Report 6128889-9 (Version None)
Quarter: 2009Q1

REPORT INFORMATION
  Report Type: 
  Country: None (occurrence: None)
  Receive Date: 20090320
  Receipt Date: 20090311
  Transmission Date: 20090719
  Serious: Yes (Death, Other)
  Sender: FDA-Public Use
  Company Number: 2009-00913

PATIENT
  Age: 48 Year
  Sex: Female
  Weight: 54.1 kg

DRUGS (2)
  1. VELCADE [Suspect]
     Indication: SALIVARY GLAND CANCER
     Dosage: 1.3 MG/M2 IV BOLUS
     Route: 040
     Dates: start: 20050401, end: 20050520
  2. DOXORUBICIN HCL [Suspect]
     Indication: SALIVARY GLAND CANCER
     Dosage: 20MG/M2, INTRAVENOUS
     Route: 042
     Dates: start: 20050513, end: 20050520

REACTIONS (2)
  - DISEASE PROGRESSION [None]
  - WHITE BLOOD CELL COUNT DECREASED [None]
